FAERS Safety Report 17533798 (Version 2)
Quarter: 2020Q4

REPORT INFORMATION
  Report Type: Report from Study
  Country: BR (occurrence: BR)
  Receive Date: 20200312
  Receipt Date: 20201116
  Transmission Date: 20210113
  Serious: Yes (Hospitalization, Other)
  Sender: FDA-Public Use
  Company Number: BR-UCBSA-2020009745

PATIENT
  Age: 66 Year
  Sex: Female
  Weight: 60 kg

DRUGS (1)
  1. CERTOLIZUMAB PEGOL [Suspect]
     Active Substance: CERTOLIZUMAB PEGOL
     Indication: RHEUMATOID ARTHRITIS
     Dosage: UNK
     Route: 058
     Dates: start: 201901

REACTIONS (7)
  - Lower limb fracture [Not Recovered/Not Resolved]
  - Upper limb fracture [Not Recovered/Not Resolved]
  - Femur fracture [Recovered/Resolved with Sequelae]
  - Therapy interrupted [Unknown]
  - Fall [Unknown]
  - Pleural effusion [Recovering/Resolving]
  - Product availability issue [Unknown]

NARRATIVE: CASE EVENT DATE: 201911
